FAERS Safety Report 24389240 (Version 1)
Quarter: 2024Q4

REPORT INFORMATION
  Report Type: Spontaneous
  Country: US (occurrence: US)
  Receive Date: 20241003
  Receipt Date: 20241003
  Transmission Date: 20250114
  Serious: No
  Sender: AMGEN
  Company Number: US-AMGEN-USASP2024192308

PATIENT
  Age: 71 Year
  Sex: Male

DRUGS (2)
  1. RITUXIMAB [Suspect]
     Active Substance: RITUXIMAB
     Indication: Waldenstrom^s macroglobulinaemia
     Dosage: UNK
     Route: 065
  2. BENDAMUSTINE [Concomitant]
     Active Substance: BENDAMUSTINE
     Indication: Waldenstrom^s macroglobulinaemia
     Dosage: UNK
     Route: 065

REACTIONS (1)
  - Off label use [Unknown]
